FAERS Safety Report 6763764-8 (Version None)
Quarter: 2010Q2

REPORT INFORMATION
  Report Type: 
  Country: None (occurrence: None)
  Receive Date: 20100610
  Receipt Date: 20100602
  Transmission Date: 20101027
  Serious: Yes (Death)
  Sender: FDA-Public Use
  Company Number: CO-ROCHE-701920

PATIENT
  Sex: Female

DRUGS (1)
  1. AVASTIN [Suspect]
     Indication: COLORECTAL CANCER
     Dosage: LAST INFUSION: 25 FEBRUARY 2010, FORM : INFUSION
     Route: 042
     Dates: start: 20100207, end: 20100225

REACTIONS (1)
  - CARDIOPULMONARY FAILURE [None]
